FAERS Safety Report 5915753-0 (Version None)
Quarter: 2008Q4

REPORT INFORMATION
  Report Type: 
  Country: None (occurrence: None)
  Receive Date: 20081010
  Receipt Date: 20081006
  Transmission Date: 20090506
  Serious: Yes (Hospitalization)
  Sender: FDA-Public Use
  Company Number: US-GENENTECH-269350

PATIENT
  Age: 32 Year
  Sex: Male

DRUGS (2)
  1. BEVACIZUMAB [Suspect]
     Indication: BILE DUCT CANCER
     Dosage: 5 MG/KG, DAYS 1+15
     Route: 042
     Dates: start: 20070828
  2. ERLOTINIB [Suspect]
     Indication: BILE DUCT CANCER
     Dosage: 150 MG, QD
     Route: 048
     Dates: start: 20070828

REACTIONS (1)
  - PNEUMOMEDIASTINUM [None]
